FAERS Safety Report 23971176 (Version 2)
Quarter: 2024Q3

REPORT INFORMATION
  Report Type: Report from Study
  Country: DK (occurrence: DK)
  Receive Date: 20240613
  Receipt Date: 20240711
  Transmission Date: 20241017
  Serious: Yes (Hospitalization)
  Sender: MERCK
  Company Number: DK-ROCHE-3370475

PATIENT
  Age: 61 Year
  Sex: Female
  Weight: 54 kg

DRUGS (30)
  1. PEMBROLIZUMAB [Suspect]
     Active Substance: PEMBROLIZUMAB
     Indication: Non-small cell lung cancer metastatic
     Dosage: ON 24/FEB/2023, THE PATIENT RECEIVED THE MOST RECENT DOSE OF STUDY DRUG PRIOR TO SAE, Q3W
     Route: 042
     Dates: start: 20230224
  2. TIRAGOLUMAB [Suspect]
     Active Substance: TIRAGOLUMAB
     Indication: Non-small cell lung cancer metastatic
     Dosage: ON 24/FEB/2023, THE PATIENT RECEIVED MOST RECENT DOSE OF STUDY DRUG PRIOR TO AE/SAE, Q3W
     Route: 042
     Dates: start: 20230224
  3. ATEZOLIZUMAB [Suspect]
     Active Substance: ATEZOLIZUMAB
     Indication: Non-small cell lung cancer metastatic
     Dosage: ON 24/FEB/2023, THE PATIENT RECEIVED THE MOST RECENT DOSE OF STUDY DRUG PRIOR TO SAE, Q3W
     Route: 042
     Dates: start: 20230224
  4. PEMETREXED [Suspect]
     Active Substance: PEMETREXED
     Indication: Non-small cell lung cancer metastatic
     Dosage: 700 MILLIGRAM, Q3W
     Route: 042
     Dates: start: 20230224
  5. PEMETREXED [Suspect]
     Active Substance: PEMETREXED
     Dosage: ON 14/APR/2023, THE PATIENT RECEIVED THE MOST RECENT
     Route: 042
     Dates: start: 20230414, end: 20230414
  6. CARBOPLATIN [Concomitant]
     Active Substance: CARBOPLATIN
     Indication: Non-small cell lung cancer metastatic
     Dosage: ON 24/FEB/2023, THE PATIENT RECEIVED THE MOST RECENT DOSE OF STUDY DRUG PRIOR TO SAE. 680 MILLIGRAM,
     Route: 042
     Dates: start: 20230224
  7. CARBOPLATIN [Concomitant]
     Active Substance: CARBOPLATIN
     Dosage: ON 14/APR/2023, THE PATIENT RECEIVED THE MOST RECENT DOSE OF STUDY DRUG PRIOR TO SAE. 590 MILLIGRAM
     Route: 042
     Dates: start: 20230414, end: 20230414
  8. ALBUTEROL SULFATE [Concomitant]
     Active Substance: ALBUTEROL SULFATE
     Indication: Dyspnoea
     Dates: start: 20230324
  9. ZOPICLONE [Concomitant]
     Active Substance: ZOPICLONE
     Indication: Insomnia
     Dates: start: 20230322
  10. ALENDRONAT [Concomitant]
     Active Substance: ALENDRONATE SODIUM
     Indication: Osteoporosis
     Dosage: UNK
     Dates: start: 20161104
  11. PREDNISOLONE [Concomitant]
     Active Substance: PREDNISOLONE
     Indication: Hepatotoxicity
     Dosage: 12.5 MILLIGRAM, QD
     Dates: start: 20230422, end: 20230428
  12. PREDNISOLONE [Concomitant]
     Active Substance: PREDNISOLONE
     Dosage: 25 MILLIGRAM, QD
     Dates: start: 20230415, end: 20230421
  13. PREDNISOLONE [Concomitant]
     Active Substance: PREDNISOLONE
     Dosage: 125 MILLIGRAM, QD
     Dates: start: 20230323, end: 20230331
  14. PREDNISOLONE [Concomitant]
     Active Substance: PREDNISOLONE
     Dosage: 50 MILLIGRAM, QD
     Dates: start: 20230408, end: 20230414
  15. PREDNISOLONE [Concomitant]
     Active Substance: PREDNISOLONE
     Dosage: 75 MILLIGRAM, QD
     Dates: start: 20230401, end: 20230407
  16. ACETAMINOPHEN [Concomitant]
     Active Substance: ACETAMINOPHEN
     Indication: Pain
     Dosage: UNK, PRN
     Dates: start: 20180430
  17. SODIUM PICOSULFATE [Concomitant]
     Active Substance: SODIUM PICOSULFATE
     Indication: Constipation
     Dates: start: 20230301
  18. LOCOID LIPOCREAM [Concomitant]
     Active Substance: HYDROCORTISONE BUTYRATE
     Indication: Rash
     Dosage: UNK, BID
     Route: 061
     Dates: start: 20230303
  19. FOLIC ACID [Concomitant]
     Active Substance: FOLIC ACID
     Dosage: 0.4 MILLIGRAM, QD
     Route: 048
     Dates: start: 20230223, end: 20230530
  20. MOVICOL [Concomitant]
     Active Substance: POLYETHYLENE GLYCOL 3350\POTASSIUM CHLORIDE\SODIUM BICARBONATE\SODIUM CHLORIDE
     Indication: Constipation
     Dates: start: 20230301
  21. CALCIUM [Concomitant]
     Active Substance: CALCIUM
     Indication: Osteoporosis
     Dates: start: 20180124
  22. PANTOPRAZOLE [Concomitant]
     Active Substance: PANTOPRAZOLE
     Dosage: UNK
     Dates: start: 20230316
  23. METOCLOPRAMIDE [Concomitant]
     Active Substance: METOCLOPRAMIDE
     Indication: Nausea
     Dates: start: 20230315
  24. CETIRIZINE [Concomitant]
     Active Substance: CETIRIZINE HYDROCHLORIDE
     Indication: Seasonal allergy
     Dates: start: 20200827
  25. PREDNISOLONE [Concomitant]
     Active Substance: PREDNISOLONE
     Indication: Hepatotoxicity
     Dosage: 25 MILLIGRAM, QD
     Route: 048
     Dates: start: 20230415, end: 20230421
  26. PREDNISOLONE [Concomitant]
     Active Substance: PREDNISOLONE
     Dosage: 50 MILLIGRAM, QD
     Route: 048
     Dates: start: 20230408, end: 20230414
  27. PREDNISOLONE [Concomitant]
     Active Substance: PREDNISOLONE
     Dosage: 125 MILLIGRAM, QD
     Route: 048
     Dates: start: 20230323, end: 20230331
  28. PREDNISOLONE [Concomitant]
     Active Substance: PREDNISOLONE
     Dosage: 12.5 MILLIGRAM, QD
     Route: 048
     Dates: start: 20230422, end: 20230428
  29. PREDNISOLONE [Concomitant]
     Active Substance: PREDNISOLONE
     Dosage: 75 MILLIGRAM, QD
     Route: 048
     Dates: start: 20230401, end: 20230407
  30. PEMETREXED [Concomitant]
     Active Substance: PEMETREXED
     Dosage: UNK
     Dates: start: 20230414, end: 20230414

REACTIONS (3)
  - Headache [Recovered/Resolved]
  - Non-cardiac chest pain [Recovered/Resolved]
  - Dermatitis bullous [Recovered/Resolved]

NARRATIVE: CASE EVENT DATE: 20230430
